FAERS Safety Report 4770806-8 (Version None)
Quarter: 2005Q3

REPORT INFORMATION
  Report Type: 
  Country: None (occurrence: None)
  Receive Date: 20050914
  Receipt Date: 20050914
  Transmission Date: 20060218
  Serious: Yes (Hospitalization)
  Sender: FDA-Public Use
  Company Number: None

PATIENT
  Age: 45 Year
  Sex: Female

DRUGS (8)
  1. ZERIT [Suspect]
     Indication: HIV INFECTION
     Dosage: 40 MG BID PO
     Route: 048
     Dates: start: 20050706
  2. EPIVIR [Suspect]
     Indication: HIV INFECTION
     Dosage: 150 MG BID PO
     Route: 048
     Dates: start: 20050706
  3. SUSTIVA [Suspect]
     Indication: HIV INFECTION
     Dosage: 600 MG QHS  PO
     Route: 048
     Dates: start: 20050706
  4. DEPO-PROVERA [Concomitant]
  5. HYDROCHLOROTHIAZIDE [Concomitant]
  6. ATENOLOL [Concomitant]
  7. PERINDOPRIL [Concomitant]
  8. PANADO [Concomitant]

REACTIONS (2)
  - FALL [None]
  - LOSS OF CONSCIOUSNESS [None]
